FAERS Safety Report 18241886 (Version 7)
Quarter: 2021Q1

REPORT INFORMATION
  Report Type: Report from Study
  Country: US (occurrence: US)
  Receive Date: 20200908
  Receipt Date: 20210113
  Transmission Date: 20210419
  Serious: Yes (Other)
  Sender: FDA-Public Use
  Company Number: NVSC2020US245671

PATIENT
  Age: 61 Year
  Sex: Female

DRUGS (3)
  1. ENTRESTO [Suspect]
     Active Substance: SACUBITRIL\VALSARTAN
     Indication: CARDIAC FAILURE
     Dosage: 200 MG, BID (97/103 MG)
     Route: 048
     Dates: start: 2015
  2. SPIRONOLACTONE. [Suspect]
     Active Substance: SPIRONOLACTONE
     Indication: PRODUCT USED FOR UNKNOWN INDICATION
     Dosage: UNK
     Route: 065
     Dates: start: 202007, end: 202007
  3. ENTRESTO [Suspect]
     Active Substance: SACUBITRIL\VALSARTAN
     Dosage: 200 MG, BID (971/03 MG)
     Route: 048
     Dates: start: 20200912

REACTIONS (14)
  - Fatigue [Not Recovered/Not Resolved]
  - Blood potassium increased [Recovered/Resolved]
  - Asthenia [Not Recovered/Not Resolved]
  - Dyspnoea [Unknown]
  - Bipolar disorder [Unknown]
  - Fear of death [Unknown]
  - Product dose omission issue [Recovered/Resolved]
  - Visual impairment [Unknown]
  - Confusional state [Recovered/Resolved]
  - Disturbance in attention [Unknown]
  - Blood glucose increased [Not Recovered/Not Resolved]
  - COVID-19 [Unknown]
  - Fluid retention [Unknown]
  - Lung disorder [Unknown]

NARRATIVE: CASE EVENT DATE: 202005
